FAERS Safety Report 7512121-5 (Version None)
Quarter: 2011Q2

REPORT INFORMATION
  Report Type: 
  Country: None (occurrence: None)
  Receive Date: 20110531
  Receipt Date: 20110519
  Transmission Date: 20111010
  Serious: Yes (Hospitalization)
  Sender: FDA-Public Use
  Company Number: US-AMGEN-USASP2011026005

PATIENT
  Age: 62 Year
  Sex: Male

DRUGS (1)
  1. ENBREL [Suspect]
     Indication: RHEUMATOID ARTHRITIS
     Dosage: 50 MG, QWK
     Dates: start: 20100423, end: 20110301

REACTIONS (5)
  - RESPIRATORY TRACT CONGESTION [None]
  - SINUS CONGESTION [None]
  - ATRIAL FLUTTER [None]
  - ATRIAL FIBRILLATION [None]
  - DYSPNOEA [None]
